FAERS Safety Report 5717511-9 (Version None)
Quarter: 2008Q2

REPORT INFORMATION
  Report Type: 
  Country: None (occurrence: None)
  Receive Date: 20080425
  Receipt Date: 20080414
  Transmission Date: 20081010
  Serious: Yes (Other)
  Sender: FDA-Public Use
  Company Number: US-JNJFOC-20080404464

PATIENT
  Sex: Male

DRUGS (10)
  1. DURAGESIC-100 [Suspect]
     Route: 062
  2. DURAGESIC-100 [Suspect]
     Route: 062
  3. DURAGESIC-100 [Suspect]
     Route: 062
  4. DURAGESIC-100 [Suspect]
     Dosage: 2 X 100 UG/HR PATCHES
     Route: 062
  5. DURAGESIC-100 [Suspect]
     Indication: PAIN
     Route: 062
  6. METHADONE HCL [Suspect]
     Indication: BREAKTHROUGH PAIN
     Route: 048
  7. OXYCODONE HCL [Suspect]
     Route: 048
  8. OXYCODONE HCL [Suspect]
     Indication: BREAKTHROUGH PAIN
     Route: 048
  9. CLEARASIL [Concomitant]
     Route: 065
  10. CLEARASIL [Concomitant]
     Indication: VOLVULUS
     Route: 065

REACTIONS (11)
  - ABDOMINAL PAIN [None]
  - BEDRIDDEN [None]
  - BREAKTHROUGH PAIN [None]
  - DRUG EFFECT DECREASED [None]
  - DRUG SCREEN NEGATIVE [None]
  - DRUG SCREEN POSITIVE [None]
  - HEADACHE [None]
  - INCORRECT DRUG ADMINISTRATION DURATION [None]
  - NASAL CONGESTION [None]
  - PAIN [None]
  - UNEVALUABLE EVENT [None]
